FAERS Safety Report 4545535-6 (Version None)
Quarter: 2005Q1

REPORT INFORMATION
  Report Type: 
  Country: None (occurrence: None)
  Receive Date: 20050103
  Receipt Date: 20041216
  Transmission Date: 20050727
  Serious: Yes (Hospitalization)
  Sender: FDA-Public Use
  Company Number: USA041082117

PATIENT
  Age: 40 Year
  Sex: Male
  Weight: 114 kg

DRUGS (4)
  1. CYMBALTA [Suspect]
     Indication: ATTENTION DEFICIT/HYPERACTIVITY DISORDER
     Dosage: 60 MG DAY
     Dates: start: 20040816, end: 20041022
  2. LUVOX [Concomitant]
  3. ZOMIG [Concomitant]
  4. FLONASE [Concomitant]

REACTIONS (4)
  - CHOLESTASIS [None]
  - CONFUSIONAL STATE [None]
  - HALLUCINATION, VISUAL [None]
  - HEPATIC TRAUMA [None]
